FAERS Safety Report 20225258 (Version 2)
Quarter: 2022Q1

REPORT INFORMATION
  Report Type: Spontaneous
  Country: JP (occurrence: JP)
  Receive Date: 20211223
  Receipt Date: 20220210
  Transmission Date: 20220423
  Serious: Yes (Other)
  Sender: FDA-Public Use
  Company Number: JP-BAXTER-2021BAX041520

PATIENT
  Age: 46 Year
  Sex: Male
  Weight: 82 kg

DRUGS (1)
  1. SUPRANE [Suspect]
     Active Substance: DESFLURANE
     Indication: Anaesthesia
     Route: 055

REACTIONS (1)
  - Thyrotoxic crisis [Recovered/Resolved]
